FAERS Safety Report 21818967 (Version 1)
Quarter: 2023Q1

REPORT INFORMATION
  Report Type: Spontaneous
  Country: US (occurrence: US)
  Receive Date: 20230104
  Receipt Date: 20230104
  Transmission Date: 20230417
  Serious: No
  Sender: FDA-Public Use
  Company Number: US-JNJFOC-20221263554

PATIENT
  Sex: Female

DRUGS (2)
  1. WOMENS ROGAINE [Suspect]
     Active Substance: MINOXIDIL
     Indication: Alopecia
     Dosage: DOSE: WHAT THE DIRECTION SAID
     Route: 061
     Dates: start: 20221028
  2. WOMENS ROGAINE [Suspect]
     Active Substance: MINOXIDIL
     Dosage: DOSE: WHAT THE DIRECTION SAID
     Route: 061

REACTIONS (1)
  - Application site pruritus [Not Recovered/Not Resolved]

NARRATIVE: CASE EVENT DATE: 20221128
